FAERS Safety Report 13659204 (Version 2)
Quarter: 2017Q3

REPORT INFORMATION
  Report Type: Report from Study
  Country: US (occurrence: US)
  Receive Date: 20170616
  Receipt Date: 20170825
  Transmission Date: 20171127
  Serious: No
  Sender: FDA-Public Use
  Company Number: US-BAYER-2017-115334

PATIENT
  Sex: Female

DRUGS (2)
  1. BETAFERON [Suspect]
     Active Substance: INTERFERON BETA-1B
     Indication: MULTIPLE SCLEROSIS
     Dosage: 0.125 MG, QOD
     Route: 058
     Dates: start: 20170517
  2. BETAFERON [Suspect]
     Active Substance: INTERFERON BETA-1B
     Indication: MULTIPLE SCLEROSIS
     Dosage: 0.25 MG, QOD
     Route: 058
     Dates: start: 201705

REACTIONS (9)
  - Pain [None]
  - Abdominal pain upper [Recovered/Resolved]
  - Thirst [None]
  - Hot flush [None]
  - Musculoskeletal stiffness [None]
  - Hyperhidrosis [None]
  - Product preparation error [None]
  - Injection site bruising [None]
  - Feeling hot [None]

NARRATIVE: CASE EVENT DATE: 2017
